FAERS Safety Report 16528900 (Version 1)
Quarter: 2019Q3

REPORT INFORMATION
  Report Type: Spontaneous
  Country: US (occurrence: US)
  Receive Date: 20190703
  Receipt Date: 20190703
  Transmission Date: 20191004
  Serious: No
  Sender: FDA-Public Use
  Company Number: US-GALDERMA-US19030013

PATIENT
  Sex: Female

DRUGS (3)
  1. MAKE UP FOUNDATION [Concomitant]
     Indication: PRODUCT USED FOR UNKNOWN INDICATION
  2. SOOLANTRA [Suspect]
     Active Substance: IVERMECTIN
     Indication: ROSACEA
     Dosage: 1%
     Route: 061
     Dates: start: 201903
  3. DOXYCYCLINE (DOXYCYCLINE) CAPSULES, 40 MG [Suspect]
     Active Substance: DOXYCYCLINE
     Indication: ROSACEA
     Dosage: 40 MG
     Route: 048

REACTIONS (4)
  - Skin texture abnormal [Not Recovered/Not Resolved]
  - Acne [Not Recovered/Not Resolved]
  - Rosacea [Not Recovered/Not Resolved]
  - Rash [Not Recovered/Not Resolved]

NARRATIVE: CASE EVENT DATE: 2019
